FAERS Safety Report 8079945-X (Version None)
Quarter: 2012Q1

REPORT INFORMATION
  Report Type: 
  Country: None (occurrence: None)
  Receive Date: 20120128
  Receipt Date: 20110802
  Transmission Date: 20120608
  Serious: No
  Sender: FDA-Public Use
  Company Number: US-ABBOTT-11P-163-0843483-00

PATIENT
  Age: 48 Year
  Sex: Female

DRUGS (5)
  1. ASPIRIN [Concomitant]
     Indication: BLOOD CHOLESTEROL INCREASED
     Dosage: DAILY
  2. VITAMIN D [Concomitant]
     Indication: SUPPLEMENTATION THERAPY
  3. ATENOLOL [Concomitant]
     Indication: HYPERTENSION
  4. CALCIUM [Concomitant]
     Dosage: NOT REPORTED
  5. HUMIRA [Suspect]
     Indication: PSORIASIS
     Dates: start: 20110612

REACTIONS (1)
  - INJECTION SITE HAEMORRHAGE [None]
